FAERS Safety Report 21766476 (Version 1)
Quarter: 2022Q4

REPORT INFORMATION
  Report Type: Report from Study
  Country: US (occurrence: US)
  Receive Date: 20221222
  Receipt Date: 20221222
  Transmission Date: 20230112
  Serious: Yes (Hospitalization)
  Sender: FDA-Public Use
  Company Number: US-EXELIXIS-CABO-22049300

PATIENT
  Age: 68 Year
  Sex: Male
  Weight: 92.086 kg

DRUGS (5)
  1. CABOMETYX [Suspect]
     Active Substance: CABOZANTINIB S-MALATE
     Indication: Metastases to lung
     Dosage: 40 MG, QD
     Route: 048
     Dates: start: 20220202
  2. CABOMETYX [Suspect]
     Active Substance: CABOZANTINIB S-MALATE
     Dosage: 40 MG, QD
     Route: 048
  3. CABOMETYX [Suspect]
     Active Substance: CABOZANTINIB S-MALATE
     Dosage: 40 MG, QOD
     Route: 048
  4. CABOMETYX [Suspect]
     Active Substance: CABOZANTINIB S-MALATE
     Dosage: 40 MG, QD
     Route: 048
  5. SYNTHROID [Concomitant]
     Active Substance: LEVOTHYROXINE SODIUM
     Dosage: UNK

REACTIONS (20)
  - Coronary artery disease [Unknown]
  - Pneumonia bacterial [Recovered/Resolved]
  - Nasal congestion [Unknown]
  - Gout [Unknown]
  - Red cell distribution width increased [Unknown]
  - Ejection fraction decreased [Unknown]
  - Skin fissures [Recovering/Resolving]
  - Impaired healing [Unknown]
  - Glossodynia [Unknown]
  - Hair colour changes [Unknown]
  - Oral pain [Not Recovered/Not Resolved]
  - Blood pressure increased [Recovered/Resolved]
  - Dry mouth [Unknown]
  - Epistaxis [Not Recovered/Not Resolved]
  - Stomatitis [Unknown]
  - Diarrhoea [Unknown]
  - Lactose intolerance [Unknown]
  - Burn oral cavity [Not Recovered/Not Resolved]
  - Inappropriate schedule of product administration [Unknown]
  - Off label use [Unknown]

NARRATIVE: CASE EVENT DATE: 20220201
